FAERS Safety Report 10274371 (Version 2)
Quarter: 2014Q3

REPORT INFORMATION
  Report Type: Spontaneous
  Country: US (occurrence: US)
  Receive Date: 20140702
  Receipt Date: 20140716
  Transmission Date: 20150326
  Serious: Yes (Hospitalization)
  Sender: FDA-Public Use
  Company Number: US-009507513-1406USA012540

PATIENT
  Age: 78 Year
  Sex: Female

DRUGS (2)
  1. PROVENTIL [Suspect]
     Active Substance: ALBUTEROL
     Indication: CHRONIC OBSTRUCTIVE PULMONARY DISEASE
     Dosage: AT LEAST 4 TIMES IN 12 HOURS
  2. PROVENTIL [Suspect]
     Active Substance: ALBUTEROL
     Dosage: 2 TIMES A DAY, ONLY AS NEEDED

REACTIONS (3)
  - Stress cardiomyopathy [Recovered/Resolved]
  - Overdose [Unknown]
  - Inappropriate schedule of drug administration [Unknown]
